FAERS Safety Report 14423376 (Version 1)
Quarter: 2018Q1

REPORT INFORMATION
  Report Type: Spontaneous
  Country: US (occurrence: US)
  Receive Date: 20180123
  Receipt Date: 20180123
  Transmission Date: 20180509
  Serious: No
  Sender: FDA-Public Use
  Company Number: US-JNJFOC-20171201434

PATIENT
  Sex: Female
  Weight: 99.79 kg

DRUGS (15)
  1. DURAGESIC [Suspect]
     Active Substance: FENTANYL
     Indication: SPONDYLITIS
     Route: 062
     Dates: start: 2017
  2. FENTANYL. [Suspect]
     Active Substance: FENTANYL
     Indication: POLYARTHRITIS
     Route: 062
  3. FENTANYL. [Suspect]
     Active Substance: FENTANYL
     Indication: SPONDYLITIS
     Route: 062
  4. FENTANYL. [Suspect]
     Active Substance: FENTANYL
     Indication: BACK PAIN
     Route: 062
  5. DURAGESIC [Suspect]
     Active Substance: FENTANYL
     Indication: NEUROPATHY PERIPHERAL
     Route: 062
     Dates: start: 2017
  6. DURAGESIC [Suspect]
     Active Substance: FENTANYL
     Indication: FIBROMYALGIA
     Route: 062
     Dates: start: 2017
  7. FENTANYL. [Suspect]
     Active Substance: FENTANYL
     Indication: NEUROPATHY PERIPHERAL
     Route: 062
     Dates: end: 2017
  8. FENTANYL. [Suspect]
     Active Substance: FENTANYL
     Indication: SPONDYLITIS
     Route: 062
     Dates: end: 2017
  9. FENTANYL. [Suspect]
     Active Substance: FENTANYL
     Indication: NEUROPATHY PERIPHERAL
     Route: 062
  10. FENTANYL. [Suspect]
     Active Substance: FENTANYL
     Indication: POLYARTHRITIS
     Route: 062
     Dates: end: 2017
  11. DURAGESIC [Suspect]
     Active Substance: FENTANYL
     Indication: POLYARTHRITIS
     Route: 062
     Dates: start: 2017
  12. DURAGESIC [Suspect]
     Active Substance: FENTANYL
     Indication: BACK PAIN
     Route: 062
     Dates: start: 2017
  13. FENTANYL. [Suspect]
     Active Substance: FENTANYL
     Indication: FIBROMYALGIA
     Route: 062
     Dates: end: 2017
  14. FENTANYL. [Suspect]
     Active Substance: FENTANYL
     Indication: FIBROMYALGIA
     Route: 062
  15. FENTANYL. [Suspect]
     Active Substance: FENTANYL
     Indication: BACK PAIN
     Route: 062
     Dates: end: 2017

REACTIONS (3)
  - Acne [Recovered/Resolved]
  - Application site rash [Recovered/Resolved]
  - Pruritus [Recovered/Resolved]
